FAERS Safety Report 6115199-9 (Version None)
Quarter: 2009Q1

REPORT INFORMATION
  Report Type: 
  Country: None (occurrence: None)
  Receive Date: 20090313
  Receipt Date: 20090304
  Transmission Date: 20090719
  Serious: Yes (Hospitalization)
  Sender: FDA-Public Use
  Company Number: AT-JNJFOC-20090301448

PATIENT
  Age: 42 Year
  Sex: Female
  Weight: 48 kg

DRUGS (6)
  1. REMICADE [Suspect]
     Indication: CROHN'S DISEASE
     Route: 042
  2. ENTOCORT EC [Concomitant]
     Indication: CROHN'S DISEASE
     Route: 048
  3. IMMUREC [Concomitant]
     Indication: CROHN'S DISEASE
     Route: 048
  4. ZURCAL [Concomitant]
     Indication: PROPHYLAXIS
     Route: 048
  5. VENLAFAXINE HCL [Concomitant]
     Indication: DEPRESSION
     Route: 048
  6. TRITTICO [Concomitant]
     Indication: DEPRESSION
     Route: 048

REACTIONS (2)
  - CYTOKINE RELEASE SYNDROME [None]
  - PAIN [None]
